FAERS Safety Report 9007278 (Version 1)
Quarter: 2013Q1

REPORT INFORMATION
  Report Type: Spontaneous
  Country: US (occurrence: US)
  Receive Date: 20130110
  Receipt Date: 20130110
  Transmission Date: 20140127
  Serious: No
  Sender: FDA-Public Use
  Company Number: US-PFIZER INC-2013012988

PATIENT
  Age: 34 Year
  Sex: Female
  Weight: 68.03 kg

DRUGS (1)
  1. ZOLOFT [Suspect]
     Indication: DEPRESSION
     Dosage: 25 MG, DAILY
     Dates: start: 201211

REACTIONS (1)
  - Diarrhoea [Not Recovered/Not Resolved]
